FAERS Safety Report 14508782 (Version 1)
Quarter: 2018Q1

REPORT INFORMATION
  Report Type: Report from Study
  Country: CR (occurrence: CR)
  Receive Date: 20180209
  Receipt Date: 20180209
  Transmission Date: 20180509
  Serious: Yes (Other)
  Sender: FDA-Public Use
  Company Number: CR-ASTRAZENECA-2018SE14965

PATIENT
  Age: 69 Year
  Sex: Male

DRUGS (2)
  1. ATACAND PLUS [Suspect]
     Active Substance: CANDESARTAN CILEXETIL\HYDROCHLOROTHIAZIDE
     Dosage: 32MG / 12.5MG, ONE TABLET PER DAY
     Route: 048
     Dates: start: 20130828
  2. ATACAND [Concomitant]
     Active Substance: CANDESARTAN CILEXETIL
     Dosage: 32.0MG UNKNOWN

REACTIONS (1)
  - Renal failure [Unknown]
